FAERS Safety Report 5060725-4 (Version None)
Quarter: 2006Q3

REPORT INFORMATION
  Report Type: 
  Country: None (occurrence: None)
  Receive Date: 20060725
  Receipt Date: 20060606
  Transmission Date: 20061208
  Serious: Yes (Other)
  Sender: FDA-Public Use
  Company Number: US-AVENTIS-200615173US

PATIENT
  Sex: Female
  Weight: 78.5 kg

DRUGS (4)
  1. KETEK [Suspect]
     Indication: LYME DISEASE
     Dosage: DOSE: UNK
     Route: 048
     Dates: start: 20050404
  2. KETEK [Suspect]
     Dosage: DOSE: UNK
     Route: 048
     Dates: start: 20050214
  3. SYNTHROID [Concomitant]
     Dosage: DOSE: UNK
  4. HERBAL PREPARATION [Concomitant]
     Dosage: DOSE: UNK
     Dates: end: 20050401

REACTIONS (11)
  - ALANINE AMINOTRANSFERASE INCREASED [None]
  - ASPARTATE AMINOTRANSFERASE INCREASED [None]
  - BLOOD ALKALINE PHOSPHATASE DECREASED [None]
  - BLOOD SODIUM DECREASED [None]
  - FATIGUE [None]
  - HEPATIC NECROSIS [None]
  - HEPATITIS [None]
  - HEPATOCELLULAR DAMAGE [None]
  - IMMUNOGLOBULINS INCREASED [None]
  - PROTEIN TOTAL INCREASED [None]
  - VIRAL INFECTION [None]
